FAERS Safety Report 5388637-7 (Version None)
Quarter: 2007Q3

REPORT INFORMATION
  Report Type: 
  Country: None (occurrence: None)
  Receive Date: 20070716
  Receipt Date: 20060102
  Transmission Date: 20080115
  Serious: Yes (Death)
  Sender: FDA-Public Use
  Company Number: KR-BOEHRINGER INGELHEIM PHARMACEUTICALS, INC.-2007-BP-17049SG

PATIENT
  Age: 49 Year
  Sex: Female

DRUGS (3)
  1. MICARDIS HCT [Suspect]
  2. MICARDIS [Suspect]
  3. NORVASC [Suspect]

REACTIONS (1)
  - CEREBRAL HAEMORRHAGE [None]
